FAERS Safety Report 15987960 (Version 5)
Quarter: 2019Q1

REPORT INFORMATION
  Report Type: Report from Study
  Country: None (occurrence: IL)
  Receive Date: 20190220
  Receipt Date: 20190329
  Transmission Date: 20190418
  Serious: No
  Sender: FDA-Public Use
  Company Number: IL-ABBVIE-17K-082-2166471-00

PATIENT
  Age: 57 Year
  Sex: Male

DRUGS (9)
  1. DUODOPA [Suspect]
     Active Substance: CARBIDOPA\LEVODOPA
     Dosage: MD 9ML, CD 2.2ML/HOUR, ED 10ML
     Route: 050
  2. PK MERZ [Concomitant]
     Active Substance: AMANTADINE SULFATE
     Indication: PRODUCT USED FOR UNKNOWN INDICATION
  3. DUODOPA [Suspect]
     Active Substance: CARBIDOPA\LEVODOPA
     Dosage: CURRENT MD 10ML. CURRENT FR- 2.3 ML/ HOUR, CURRENT ED- 1 ML
     Route: 050
  4. DUODOPA [Suspect]
     Active Substance: CARBIDOPA\LEVODOPA
     Dosage: RESUMED PREVIOUS DOSE
     Route: 050
  5. DUODOPA [Suspect]
     Active Substance: CARBIDOPA\LEVODOPA
     Dosage: CURRENT MD- 10 ML, CR- 2.8 ML/ HOUR, CURRENT ED- 10 ML
     Route: 050
  6. DUODOPA [Suspect]
     Active Substance: CARBIDOPA\LEVODOPA
     Indication: PARKINSON^S DISEASE
     Dosage: MD 8ML. ,CURRENT FR- 2.3 ML/ HOUR, CURRENT ED- 1 ML
     Route: 050
     Dates: start: 20170618, end: 20171120
  7. DUODOPA [Suspect]
     Active Substance: CARBIDOPA\LEVODOPA
     Dosage: CURRENT MD 10.0 ML, CURRENT CD 2.5ML/HOUR, CURRENT ED 1.3ML
     Route: 050
  8. DUODOPA [Suspect]
     Active Substance: CARBIDOPA\LEVODOPA
     Dosage: FD AND ED WAS INCREASED.
     Route: 050
  9. DUODOPA [Suspect]
     Active Substance: CARBIDOPA\LEVODOPA
     Dosage: CURRENT MD 8, CD 2, ED 10
     Route: 050
     Dates: start: 201903

REACTIONS (8)
  - Confusional state [Recovered/Resolved]
  - On and off phenomenon [Recovered/Resolved]
  - Freezing phenomenon [Unknown]
  - Fatigue [Unknown]
  - Infrequent bowel movements [Unknown]
  - Cognitive disorder [Not Recovered/Not Resolved]
  - Dyskinesia [Unknown]
  - Dyskinesia [Recovered/Resolved]

NARRATIVE: CASE EVENT DATE: 201902
